FAERS Safety Report 7656966-X (Version None)
Quarter: 2011Q3

REPORT INFORMATION
  Report Type: 
  Country: None (occurrence: None)
  Receive Date: 20110804
  Receipt Date: 20110801
  Transmission Date: 20111222
  Serious: Yes (Other)
  Sender: FDA-Public Use
  Company Number: US-PFIZER INC-2011160426

PATIENT
  Sex: Male

DRUGS (2)
  1. VITAMINS NOS [Suspect]
     Dosage: UNK, DAILY
  2. LIPITOR [Suspect]
     Dosage: UNK

REACTIONS (6)
  - GAIT DISTURBANCE [None]
  - MUSCULAR WEAKNESS [None]
  - TREMOR [None]
  - BALANCE DISORDER [None]
  - ABDOMINAL PAIN UPPER [None]
  - BRAIN INJURY [None]
